FAERS Safety Report 7344609-4 (Version None)
Quarter: 2011Q1

REPORT INFORMATION
  Report Type: 
  Country: None (occurrence: None)
  Receive Date: 20110310
  Receipt Date: 20110302
  Transmission Date: 20110831
  Serious: Yes (Other)
  Sender: FDA-Public Use
  Company Number: CA-US-EMD SERONO, INC.-7032288

PATIENT
  Sex: Male

DRUGS (5)
  1. WELBUTRIN XL (WELLBUTRIN XL) [Concomitant]
  2. ALTACE [Concomitant]
  3. LIPITOR [Concomitant]
  4. REBIF [Suspect]
     Indication: RELAPSING-REMITTING MULTIPLE SCLEROSIS
     Dates: start: 20101201
  5. VITAMIN D [Concomitant]

REACTIONS (4)
  - INFLUENZA LIKE ILLNESS [None]
  - VENOUS OCCLUSION [None]
  - DEPRESSION [None]
  - FEELING ABNORMAL [None]
